FAERS Safety Report 10746367 (Version 1)
Quarter: 2015Q1

REPORT INFORMATION
  Report Type: Other
  Country: TR (occurrence: TR)
  Receive Date: 20150128
  Receipt Date: 20150128
  Transmission Date: 20150721
  Serious: Yes (Hospitalization, Other)
  Sender: FDA-Public Use
  Company Number: TR-ACTELION-A-CH2015-111515

PATIENT
  Weight: 1.97 kg

DRUGS (5)
  1. TRACLEER [Suspect]
     Active Substance: BOSENTAN\BOSENTAN MONOHYDRATE
     Indication: MATERNAL EXPOSURE BEFORE PREGNANCY
     Route: 064
  2. ILOPROST [Concomitant]
     Active Substance: ILOPROST
     Indication: EXPOSURE DURING PREGNANCY
     Route: 064
  3. BETAMETHASONE [Concomitant]
     Active Substance: BETAMETHASONE
     Indication: EXPOSURE DURING PREGNANCY
     Route: 064
  4. SILDENAFIL. [Concomitant]
     Active Substance: SILDENAFIL
     Indication: EXPOSURE DURING PREGNANCY
     Route: 064
  5. ENOXAPARIN [Concomitant]
     Active Substance: ENOXAPARIN
     Indication: EXPOSURE DURING PREGNANCY
     Route: 064

REACTIONS (2)
  - Premature baby [Unknown]
  - Neonatal respiratory distress syndrome [Recovered/Resolved]
